FAERS Safety Report 14110564 (Version 2)
Quarter: 2017Q4

REPORT INFORMATION
  Report Type: Spontaneous
  Country: CH (occurrence: CH)
  Receive Date: 20171020
  Receipt Date: 20171025
  Transmission Date: 20180321
  Serious: Yes (Other)
  Sender: FDA-Public Use
  Company Number: CH-JNJFOC-20171019098

PATIENT
  Age: 50 Year
  Sex: Male

DRUGS (4)
  1. SANDIMMUN NEORAL [Concomitant]
     Active Substance: CYCLOSPORINE
     Route: 048
     Dates: start: 20150828
  2. MYFORTIC [Concomitant]
     Active Substance: MYCOPHENOLATE SODIUM
     Route: 048
     Dates: start: 20140304
  3. REMICADE [Suspect]
     Active Substance: INFLIXIMAB
     Indication: CHOROIDITIS
     Route: 042
     Dates: start: 20160428
  4. REMICADE [Suspect]
     Active Substance: INFLIXIMAB
     Indication: CHOROIDITIS
     Route: 042
     Dates: start: 20161201

REACTIONS (3)
  - Off label use [Unknown]
  - Transitional cell carcinoma [Recovering/Resolving]
  - Product use in unapproved indication [Unknown]

NARRATIVE: CASE EVENT DATE: 20161201
